FAERS Safety Report 7725967-5 (Version None)
Quarter: 2011Q3

REPORT INFORMATION
  Report Type: 
  Country: None (occurrence: None)
  Receive Date: 20110902
  Receipt Date: 20110725
  Transmission Date: 20111222
  Serious: Yes (Hospitalization)
  Sender: FDA-Public Use
  Company Number: DK-AMGEN-DNKCT2011002411

PATIENT
  Age: 75 Year
  Sex: Female

DRUGS (11)
  1. DESLORATADINE [Concomitant]
     Dosage: 5 MG, UNK
     Dates: start: 20080610
  2. PULMICORT [Concomitant]
     Dosage: 400 MG, UNK
     Dates: start: 20080610
  3. SIMVASTATIN [Concomitant]
     Dosage: 10 MG, UNK
     Dates: start: 20060710
  4. NITROGLYCERIN [Concomitant]
     Dosage: 0.5 MG, UNK
     Dates: start: 20110327
  5. SINGULAIR [Concomitant]
     Dosage: 10 MG, UNK
     Dates: start: 20080813
  6. MAGNYL [Concomitant]
     Dosage: 150 MG, UNK
  7. CENTYL [Concomitant]
  8. ALBUTEROL [Concomitant]
     Dosage: UNK
     Dates: start: 20080610
  9. VITAMIN D [Concomitant]
     Dosage: UNK
     Dates: start: 20060327
  10. DENOSUMAB [Suspect]
     Indication: OSTEOPOROSIS POSTMENOPAUSAL
     Dosage: 60 MG, Q6MO
     Route: 058
     Dates: start: 20071009
  11. FLUTICASONE PROPIONATE [Concomitant]
     Dosage: UNK
     Dates: start: 20080410

REACTIONS (1)
  - OSTEOARTHRITIS [None]
